FAERS Safety Report 4864104-1 (Version None)
Quarter: 2005Q4

REPORT INFORMATION
  Report Type: 
  Country: None (occurrence: None)
  Receive Date: 20051222
  Receipt Date: 20051219
  Transmission Date: 20060501
  Serious: Yes (Other)
  Sender: FDA-Public Use
  Company Number: 12428074

PATIENT
  Age: 57 Year
  Sex: Male

DRUGS (16)
  1. AVANDIA [Suspect]
     Indication: DRUG USE FOR UNKNOWN INDICATION
     Dosage: 4MG TWICE PER DAY
  2. DIAMICRON [Suspect]
     Indication: DRUG USE FOR UNKNOWN INDICATION
     Dosage: 120MG TWICE PER DAY
  3. METFORMIN [Suspect]
     Indication: DRUG USE FOR UNKNOWN INDICATION
     Dosage: 500MG FOUR TIMES PER DAY
  4. TEQUIN [Suspect]
     Indication: DRUG USE FOR UNKNOWN INDICATION
     Dosage: 400MG PER DAY
     Route: 048
  5. ENTERIC COATED ACETYLSALICYLIC ACID [Concomitant]
     Dosage: 325MG PER DAY
  6. COLACE [Concomitant]
     Dosage: 100MG AS REQUIRED
  7. DITROPAN [Concomitant]
     Dosage: 2.5MG THREE TIMES PER DAY
  8. ELAVIL [Concomitant]
     Dosage: 40MG PER DAY
  9. FENOFIBRATE [Concomitant]
     Dosage: 200MG PER DAY
  10. FUROSEMIDE [Concomitant]
     Dosage: 20MG PER DAY
  11. GARLINASE [Concomitant]
  12. IMOVANE [Concomitant]
     Dosage: 7.5MG AS REQUIRED
  13. LIORESAL [Concomitant]
     Dosage: 90MG PER DAY
  14. VENTOLIN [Concomitant]
     Dosage: 4PUFF AS REQUIRED
  15. ASCORBIC ACID [Concomitant]
     Dosage: 600MG PER DAY
  16. ZANAFLEX [Concomitant]
     Dosage: 2MG FOUR TIMES PER DAY

REACTIONS (2)
  - DRUG INTERACTION [None]
  - HYPOGLYCAEMIA [None]
